FAERS Safety Report 9519846 (Version 1)
Quarter: 2013Q3

REPORT INFORMATION
  Report Type: Spontaneous
  Country: US (occurrence: US)
  Receive Date: 20130912
  Receipt Date: 20130912
  Transmission Date: 20140515
  Serious: Yes (Other)
  Sender: FDA-Public Use
  Company Number: US-ASTELLAS-2013US009361

PATIENT
  Age: 20 Year
  Sex: Male
  Weight: 46 kg

DRUGS (1)
  1. PROGRAF [Suspect]
     Indication: HEART TRANSPLANT
     Dosage: 1.5 MG, UID/QD
     Route: 048
     Dates: start: 20070708

REACTIONS (2)
  - Haematochezia [Unknown]
  - Asthenia [Unknown]
